FAERS Safety Report 5737322-8 (Version None)
Quarter: 2008Q2

REPORT INFORMATION
  Report Type: 
  Country: None (occurrence: None)
  Receive Date: 20080513
  Receipt Date: 20080513
  Transmission Date: 20081010
  Serious: Yes (Hospitalization)
  Sender: FDA-Public Use
  Company Number: None

PATIENT
  Sex: Male

DRUGS (1)
  1. DIGITEK 0.25MG AVANTIS [Suspect]
     Dosage: 1 DAILY PO
     Route: 048
     Dates: start: 20080116, end: 20080508

REACTIONS (2)
  - CARDIAC DISORDER [None]
  - VISUAL DISTURBANCE [None]
